FAERS Safety Report 17305363 (Version 3)
Quarter: 2020Q1

REPORT INFORMATION
  Report Type: Spontaneous
  Country: GB (occurrence: GB)
  Receive Date: 20200123
  Receipt Date: 20200324
  Transmission Date: 20200409
  Serious: Yes (Hospitalization)
  Sender: FDA-Public Use
  Company Number: GB-VERTEX PHARMACEUTICALS-2019-011299

PATIENT
  Sex: Female

DRUGS (2)
  1. KALYDECO [Suspect]
     Active Substance: IVACAFTOR
     Indication: CYSTIC FIBROSIS
     Dosage: UNK
     Route: 048
     Dates: start: 201904
  2. SYMKEVI [Suspect]
     Active Substance: IVACAFTOR\TEZACAFTOR
     Indication: CYSTIC FIBROSIS
     Dosage: 100/150 MG TABLETS, FREQUENCY UNKNOWN
     Route: 048
     Dates: start: 201904

REACTIONS (10)
  - Malaise [Recovering/Resolving]
  - Asthenia [Unknown]
  - Depressed mood [Recovering/Resolving]
  - Lower respiratory tract infection [Recovering/Resolving]
  - Blood glucose increased [Not Recovered/Not Resolved]
  - Alopecia [Recovering/Resolving]
  - Gastrointestinal infection [Unknown]
  - Rhinorrhoea [Unknown]
  - Sputum discoloured [Unknown]
  - Menorrhagia [Not Recovered/Not Resolved]

NARRATIVE: CASE EVENT DATE: 2019
